FAERS Safety Report 18046241 (Version 1)
Quarter: 2020Q3

REPORT INFORMATION
  Report Type: Spontaneous
  Country: US (occurrence: US)
  Receive Date: 20200720
  Receipt Date: 20200720
  Transmission Date: 20201103
  Serious: Yes (Life-Threatening, Hospitalization)
  Sender: FDA-Public Use
  Company Number: US-ELI_LILLY_AND_COMPANY-US202007007420

PATIENT
  Age: 70 Year
  Sex: Female
  Weight: 63.49 kg

DRUGS (6)
  1. REMODULIN [Suspect]
     Active Substance: TREPROSTINIL
     Indication: PULMONARY ARTERIAL HYPERTENSION
     Dosage: 2.5 DOSAGE FORM, UNKNOWN (MILLIGRAM PER MILLILITRE)
     Route: 042
     Dates: start: 20190802
  2. LETAIRIS [Suspect]
     Active Substance: AMBRISENTAN
     Dosage: 30 MG, DAILY
     Route: 065
  3. LETAIRIS [Suspect]
     Active Substance: AMBRISENTAN
     Indication: PULMONARY ARTERIAL HYPERTENSION
     Dosage: UNK, UNKNOWN
     Route: 065
  4. TADALAFIL. [Suspect]
     Active Substance: TADALAFIL
     Indication: PULMONARY ARTERIAL HYPERTENSION
     Dosage: UNK, UNKNOWN
     Route: 065
  5. TADALAFIL. [Suspect]
     Active Substance: TADALAFIL
     Dosage: 30 MG, DAILY
     Route: 065
  6. REMODULIN [Suspect]
     Active Substance: TREPROSTINIL
     Dosage: 2.5 DOSAGE FORM, UNKNOWN (MILLIGRAM PER MILLILITRE)
     Route: 041
     Dates: start: 20190802

REACTIONS (3)
  - Oxygen saturation decreased [Unknown]
  - Hypoxia [Unknown]
  - Fluid overload [Unknown]

NARRATIVE: CASE EVENT DATE: 20200509
